FAERS Safety Report 6031063-8 (Version None)
Quarter: 2009Q1

REPORT INFORMATION
  Report Type: 
  Country: None (occurrence: None)
  Receive Date: 20090108
  Receipt Date: 20090106
  Transmission Date: 20090719
  Serious: Yes (Hospitalization)
  Sender: FDA-Public Use
  Company Number: US-BRISTOL-MYERS SQUIBB COMPANY-14461982

PATIENT
  Age: 45 Year
  Sex: Male
  Weight: 57 kg

DRUGS (2)
  1. CISPLATIN [Suspect]
     Indication: PHARYNGEAL CANCER STAGE UNSPECIFIED
     Dosage: INITIAL DOSE: 08DEC2008, ON DAY 1 AND DAY 22 WITH HELD ON 29DEC2008
     Route: 042
     Dates: start: 20081208, end: 20081208
  2. RADIATION THERAPY [Suspect]
     Indication: PHARYNGEAL CANCER STAGE UNSPECIFIED
     Dosage: EXTERNAL BEAM 1 DOSAGE FORM: 3400 CGY NO OF FRACTIONS:35 NO OF ELASPSED DAYS:17
     Dates: start: 20081229, end: 20081229

REACTIONS (4)
  - HAEMOGLOBIN DECREASED [None]
  - HYPOALBUMINAEMIA [None]
  - PYREXIA [None]
  - STOMATITIS [None]
